FAERS Safety Report 5920052-7 (Version None)
Quarter: 2008Q4

REPORT INFORMATION
  Report Type: 
  Country: None (occurrence: None)
  Receive Date: 20081014
  Receipt Date: 20081006
  Transmission Date: 20090506
  Serious: Yes (Other)
  Sender: FDA-Public Use
  Company Number: S08-USA-01937-01

PATIENT
  Age: 57 Year
  Sex: Female

DRUGS (5)
  1. LEXAPRO [Suspect]
     Indication: DEPRESSION
     Dosage: 10 MG (10 MG, 1 IN 1 D), ORAL
     Route: 048
     Dates: start: 20080515, end: 20080526
  2. AMBIEN (ZOLPIDEM TARTRATE) (ZOLIPIDEM  TARTRATE) [Concomitant]
  3. METFORMIN (METFORMIN) (METFORMIN) [Concomitant]
  4. MULTI-VITAMIN [Concomitant]
  5. VICOPROFEN [Concomitant]

REACTIONS (5)
  - BURSITIS [None]
  - OEDEMA PERIPHERAL [None]
  - PAIN IN EXTREMITY [None]
  - VITAMIN D DECREASED [None]
  - WEIGHT INCREASED [None]
